FAERS Safety Report 8934048 (Version 2)
Quarter: 2012Q4

REPORT INFORMATION
  Report Type: Report from Study
  Country: FR (occurrence: FR)
  Receive Date: 20121129
  Receipt Date: 20121227
  Transmission Date: 20130627
  Serious: Yes (Hospitalization, Other)
  Sender: FDA-Public Use
  Company Number: FR-TEVA-366695USA

PATIENT
  Age: 72 Year
  Sex: Male
  Weight: 89 kg

DRUGS (14)
  1. TREANDA [Suspect]
     Indication: MANTLE CELL LYMPHOMA
     Route: 042
     Dates: start: 20121002
  2. TREANDA [Suspect]
     Dosage: cycle 2
     Route: 042
     Dates: start: 20121105
  3. RITUXIMAB [Suspect]
     Indication: MANTLE CELL LYMPHOMA
     Route: 042
     Dates: start: 20121002
  4. RITUXIMAB [Suspect]
     Dosage: Cycle 2
     Dates: start: 20121105
  5. VELCADE [Suspect]
     Indication: MANTLE CELL LYMPHOMA
     Route: 058
     Dates: start: 20121002
  6. VELCADE [Suspect]
     Dosage: cycle 2
     Dates: start: 20121105
  7. DEXAMETHASONE [Suspect]
     Indication: MANTLE CELL LYMPHOMA
     Route: 042
     Dates: start: 20121003
  8. DEXAMETHASONE [Suspect]
     Dosage: cycle 2
     Dates: start: 20121105
  9. ORACILLINE [Concomitant]
     Indication: INFECTION PROPHYLAXIS
     Dates: start: 20121009, end: 20121014
  10. TAHOR [Concomitant]
  11. NITRENDIPINE [Concomitant]
  12. ZELITREX [Concomitant]
     Dates: start: 20121002
  13. SYMBICORT [Concomitant]
  14. PERFALGAN [Concomitant]

REACTIONS (8)
  - Immunosuppression [Recovered/Resolved]
  - Pneumonia bacterial [Recovered/Resolved]
  - Viral infection [Recovered/Resolved]
  - Bacterial infection [Recovered/Resolved]
  - Meningitis [Unknown]
  - Chills [Unknown]
  - Epilepsy [Unknown]
  - Purpura [Unknown]
